FAERS Safety Report 20838122 (Version 1)
Quarter: 2022Q2

REPORT INFORMATION
  Report Type: Spontaneous
  Country: US (occurrence: US)
  Receive Date: 20220517
  Receipt Date: 20220517
  Transmission Date: 20220720
  Serious: No
  Sender: FDA-Public Use
  Company Number: US-ALLERGAN-2208285US

PATIENT
  Age: 20 Year
  Sex: Female
  Weight: 58.503 kg

DRUGS (5)
  1. KYBELLA [Suspect]
     Active Substance: DEOXYCHOLIC ACID
     Indication: Lipolysis procedure
     Dosage: UNK, SINGLE
     Route: 058
     Dates: start: 20211214, end: 20211214
  2. NEXPLANON [Concomitant]
     Active Substance: ETONOGESTREL
     Dosage: IMPLANT IN ARM
  3. ACCUTANE [Concomitant]
     Active Substance: ISOTRETINOIN
  4. lip fillers [Concomitant]
  5. GLT topical anesthetic [Concomitant]

REACTIONS (2)
  - Injection site induration [Recovering/Resolving]
  - Injection site swelling [Recovered/Resolved]

NARRATIVE: CASE EVENT DATE: 20211201
